FAERS Safety Report 8886259 (Version 1)
Quarter: 2012Q4

REPORT INFORMATION
  Report Type: 
  Country: ES (occurrence: ES)
  Receive Date: 20121105
  Receipt Date: 20121105
  Transmission Date: 20130627
  Serious: Yes (Other)
  Sender: FDA-Public Use
  Company Number: ES-UCBSA-070013

PATIENT
  Age: 43 Year
  Sex: Male

DRUGS (5)
  1. KEPPRA [Suspect]
     Dosage: 100 MG/ML . TOTAL DAILY DOSE  : 2 G
     Route: 042
     Dates: start: 20120805, end: 20120810
  2. NIMODIPINE [Suspect]
     Indication: SUBARACHNOID HAEMORRHAGE
     Dosage: TOTAL DAILY DOSE : 240 MG
     Route: 042
     Dates: start: 20120805, end: 20120813
  3. PANTOPRAZOLE [Suspect]
     Dosage: TOTAL DAILY DOSE : 40 MG
     Route: 042
     Dates: start: 20120805, end: 20120813
  4. DEXAMETHASONE [Concomitant]
     Indication: SUBARACHNOID HAEMORRHAGE
     Dosage: DAILY DOSE : 8 MG
     Route: 042
     Dates: start: 20120805, end: 20120812
  5. METOCLOPRAMIDA [Concomitant]
     Indication: VOMITING
     Dosage: DAILY DOSE : 30 MG
     Route: 042
     Dates: start: 20120805, end: 20120812

REACTIONS (1)
  - Transaminases increased [Unknown]
